FAERS Safety Report 9918160 (Version 2)
Quarter: 2014Q1

REPORT INFORMATION
  Report Type: Spontaneous
  Country: US (occurrence: US)
  Receive Date: 20140223
  Receipt Date: 20140223
  Transmission Date: 20141002
  Serious: Yes (Other)
  Sender: FDA-Public Use
  Company Number: US-ALLERGAN-1308869US

PATIENT
  Age: 37 Year
  Sex: Female

DRUGS (2)
  1. OZURDEX [Suspect]
     Indication: UVEITIS
     Dosage: 0.7 MG, SINGLE
     Route: 031
     Dates: start: 20130531, end: 20130531
  2. OZURDEX [Suspect]
     Indication: CYSTOID MACULAR OEDEMA

REACTIONS (2)
  - Corneal oedema [Recovered/Resolved]
  - Device dislocation [Recovered/Resolved]
